FAERS Safety Report 7379932-0 (Version None)
Quarter: 2011Q1

REPORT INFORMATION
  Report Type: 
  Country: None (occurrence: None)
  Receive Date: 20110329
  Receipt Date: 20110314
  Transmission Date: 20110831
  Serious: Yes (Other)
  Sender: FDA-Public Use
  Company Number: PHHY2011FR21732

PATIENT
  Sex: Female

DRUGS (9)
  1. TENSTATEN [Concomitant]
     Dosage: 50 MG, UNK
     Route: 048
     Dates: start: 20101125, end: 20101130
  2. PROPRANOLOL [Concomitant]
     Indication: HYPERTENSION
     Dosage: 40 MG, BID
     Route: 048
     Dates: start: 20081104
  3. PROPRANOLOL [Concomitant]
     Dosage: 160 MG, QD
     Route: 048
     Dates: start: 20110101
  4. ALPRAZOLAM [Concomitant]
     Indication: ANXIETY
     Dosage: 0.25 MG, QD
     Route: 048
     Dates: start: 20101202
  5. XENICAL [Concomitant]
     Dosage: 120 MG, UNK
     Dates: start: 20100701, end: 20101202
  6. COTAREG [Suspect]
     Indication: HYPERTENSION
     Dosage: 80 MG OF VALS AND 12.5 MG OF HYD, QD
     Route: 048
     Dates: start: 20101130, end: 20110125
  7. LIVIAL [Concomitant]
     Dosage: 2.5 MG, UNK
     Route: 048
  8. DERMOVAL [Concomitant]
  9. ABUFENE [Concomitant]
     Indication: HOT FLUSH
     Dosage: 400 MG, TID
     Route: 048
     Dates: start: 20101202

REACTIONS (7)
  - OEDEMA [None]
  - EPISTAXIS [None]
  - ECZEMA [None]
  - DRY SKIN [None]
  - VISUAL IMPAIRMENT [None]
  - GAMMA-GLUTAMYLTRANSFERASE INCREASED [None]
  - TRANSAMINASES INCREASED [None]
